FAERS Safety Report 23140606 (Version 2)
Quarter: 2023Q4

REPORT INFORMATION
  Report Type: Spontaneous
  Country: NL (occurrence: NL)
  Receive Date: 20231103
  Receipt Date: 20231115
  Transmission Date: 20240109
  Serious: Yes (Hospitalization, Other)
  Sender: FDA-Public Use
  Company Number: NL-MLMSERVICE-20231027-4630002-1

PATIENT
  Age: 73 Year
  Sex: Female

DRUGS (6)
  1. ESCITALOPRAM [Suspect]
     Active Substance: ESCITALOPRAM OXALATE
     Indication: Generalised anxiety disorder
     Dosage: DOSE INCREASED
     Route: 065
     Dates: start: 2021, end: 2021
  2. ESCITALOPRAM [Suspect]
     Active Substance: ESCITALOPRAM OXALATE
     Indication: Generalised anxiety disorder
     Dosage: SEVEN WEEKS LATER (LIQUID (DROPS) IN THE BUILD-UP PHASE)?DOSE FROM: LIQUID
     Route: 065
     Dates: start: 2021, end: 2021
  3. ESCITALOPRAM [Suspect]
     Active Substance: ESCITALOPRAM OXALATE
     Indication: Generalised anxiety disorder
     Dosage: DOSE WAS HALVED FOR SEVEN DAYS
     Route: 065
     Dates: start: 2021, end: 2021
  4. ESCITALOPRAM [Suspect]
     Active Substance: ESCITALOPRAM OXALATE
     Indication: Generalised anxiety disorder
     Dosage: LIQUID (DROPS) IN THE BUILD-UP PHASE.?DOSE FORM: LIQUID
     Route: 065
     Dates: start: 2021, end: 2021
  5. QUETIAPINE [Concomitant]
     Active Substance: QUETIAPINE
     Indication: Depression
     Route: 048
  6. QUETIAPINE [Concomitant]
     Active Substance: QUETIAPINE
     Indication: Depression
     Route: 048
     Dates: start: 2021, end: 2021

REACTIONS (3)
  - Transient global amnesia [Recovered/Resolved]
  - Underdose [Unknown]
  - Inappropriate schedule of product administration [Unknown]

NARRATIVE: CASE EVENT DATE: 20210101
